FAERS Safety Report 17375944 (Version 1)
Quarter: 2020Q1

REPORT INFORMATION
  Report Type: Spontaneous
  Country: IT (occurrence: IT)
  Receive Date: 20200206
  Receipt Date: 20200206
  Transmission Date: 20200409
  Serious: Yes (Other)
  Sender: FDA-Public Use
  Company Number: IT-TEVA-2019-IT-1111649

PATIENT
  Age: 71 Year
  Sex: Female

DRUGS (7)
  1. PLASIL [Concomitant]
     Active Substance: METOCLOPRAMIDE HYDROCHLORIDE
  2. HALAVEN 0.44 MG/ML SOLUTION FOR INJECTION [Concomitant]
  3. METOTRESSATO TEVA 100 MG/ML SOLUZIONE INIETTABILE [Suspect]
     Active Substance: METHOTREXATE SODIUM
     Indication: METASTASES TO BONE
     Route: 065
     Dates: start: 20180919
  4. MITOMICINA ACCORD HEALTHCARE [Suspect]
     Active Substance: MITOMYCIN
     Dates: start: 20180919
  5. ONKOTRONE10 MG CONCENTRATO PER SOLUZIONE PER INFUSIONE [Suspect]
     Active Substance: MITOXANTRONE HYDROCHLORIDE
     Dates: start: 20180919
  6. TRAMADOLO ABC [Concomitant]
  7. ABBA [Concomitant]

REACTIONS (5)
  - Nausea [Unknown]
  - Conjunctivitis [Unknown]
  - Paraesthesia [Unknown]
  - Neutropenia [Unknown]
  - Asthenia [Unknown]

NARRATIVE: CASE EVENT DATE: 20181020
